FAERS Safety Report 19592980 (Version 1)
Quarter: 2021Q3

REPORT INFORMATION
  Report Type: Spontaneous
  Country: US (occurrence: US)
  Receive Date: 20210722
  Receipt Date: 20210722
  Transmission Date: 20211014
  Serious: No
  Sender: FDA-Public Use
  Company Number: US-KINDEVA DRUG DELIVERY L.P.-2114137

PATIENT
  Age: 65 Year
  Sex: Female

DRUGS (2)
  1. ALBUTEROL SULFATE. [Suspect]
     Active Substance: ALBUTEROL SULFATE
     Route: 055
  2. ALBUTEROL SULFATE 90MCG [Suspect]
     Active Substance: ALBUTEROL SULFATE

REACTIONS (2)
  - No adverse event [Unknown]
  - Device failure [Unknown]
